FAERS Safety Report 19511859 (Version 3)
Quarter: 2021Q3

REPORT INFORMATION
  Report Type: Report from Study
  Country: US (occurrence: US)
  Receive Date: 20210709
  Receipt Date: 20210719
  Transmission Date: 20211014
  Serious: Yes (Other)
  Sender: FDA-Public Use
  Company Number: US-MYLANLABS-2021M1036280

PATIENT
  Sex: Female
  Weight: 77 kg

DRUGS (1)
  1. GLATIRAMER ACETATE INJECTION [Suspect]
     Active Substance: GLATIRAMER ACETATE
     Indication: MULTIPLE SCLEROSIS
     Dosage: 40 MILLIGRAM, 3XW
     Route: 058

REACTIONS (10)
  - Chest pain [Unknown]
  - Somnolence [Unknown]
  - Diplopia [Unknown]
  - Injection site pruritus [Unknown]
  - Memory impairment [Unknown]
  - Injection site erythema [Unknown]
  - Headache [Unknown]
  - Multiple sclerosis relapse [Unknown]
  - Injection site pain [Unknown]
  - Erythema [Unknown]
